FAERS Safety Report 17008482 (Version 1)
Quarter: 2019Q4

REPORT INFORMATION
  Report Type: Spontaneous
  Country: US (occurrence: US)
  Receive Date: 20191108
  Receipt Date: 20191108
  Transmission Date: 20200122
  Serious: No
  Sender: FDA-Public Use
  Company Number: US-MYLANLABS-2019M1103285

PATIENT
  Sex: Female
  Weight: 54 kg

DRUGS (1)
  1. ALPRAZOLAM. [Suspect]
     Active Substance: ALPRAZOLAM
     Indication: SLEEP DISORDER
     Dosage: UNK
     Route: 048

REACTIONS (2)
  - Recalled product administered [Not Recovered/Not Resolved]
  - Off label use [Not Recovered/Not Resolved]
